FAERS Safety Report 9338300 (Version 1)
Quarter: 2013Q2

REPORT INFORMATION
  Report Type: Spontaneous
  Country: US (occurrence: None)
  Receive Date: 20130605
  Receipt Date: 20130605
  Transmission Date: 20140414
  Serious: Yes (Hospitalization)
  Sender: FDA-Public Use
  Company Number: None

PATIENT
  Age: 78 Year
  Sex: Female
  Weight: 44.9 kg

DRUGS (2)
  1. CARBOPLATIN [Suspect]
     Dosage: 392 MG, CYCLE 4 ADMINISTERED5/6/13.
     Route: 042
  2. PACLITAXEL [Suspect]
     Dosage: 175/MG/M2 IV
     Route: 042

REACTIONS (6)
  - Asthenia [None]
  - Pyrexia [None]
  - Blood culture positive [None]
  - Blood sodium decreased [None]
  - Anaemia [None]
  - Urinary tract infection [None]
